FAERS Safety Report 9471009 (Version 3)
Quarter: 2013Q4

REPORT INFORMATION
  Report Type: Report from Study
  Country: FR (occurrence: FR)
  Receive Date: 20130822
  Receipt Date: 20131021
  Transmission Date: 20140711
  Serious: Yes (Other)
  Sender: FDA-Public Use
  Company Number: PHHY2013FR090632

PATIENT
  Age: 37 Year
  Sex: Male

DRUGS (8)
  1. MYCOPHENOLIC ACID [Suspect]
     Indication: RENAL TRANSPLANT
     Dosage: UNK UKN, UNK
     Dates: start: 20100226
  2. MYCOPHENOLIC ACID [Suspect]
     Indication: IMMUNOSUPPRESSION
  3. NEORAL [Suspect]
     Indication: RENAL TRANSPLANT
     Dosage: UNK UKN, UNK
     Dates: start: 20110108
  4. NEORAL [Suspect]
     Indication: IMMUNOSUPPRESSION
  5. CERTICAN [Suspect]
     Indication: RENAL TRANSPLANT
     Dosage: UNK UKN, UNK
  6. CERTICAN [Suspect]
     Indication: IMMUNOSUPPRESSION
  7. SOLUPRED [Concomitant]
     Indication: RENAL TRANSPLANT
     Dosage: UNK UKN, UNK
     Dates: start: 20100710, end: 20110826
  8. SOLUPRED [Concomitant]
     Indication: IMMUNOSUPPRESSION

REACTIONS (2)
  - Facial bones fracture [Unknown]
  - Sinusitis [Recovered/Resolved]
